FAERS Safety Report 13765939 (Version 2)
Quarter: 2018Q1

REPORT INFORMATION
  Report Type: Report from Study
  Country: CA (occurrence: CA)
  Receive Date: 20170718
  Receipt Date: 20180131
  Transmission Date: 20180508
  Serious: Yes (Life-Threatening, Hospitalization, Other)
  Sender: FDA-Public Use
  Company Number: CA-MYLANLABS-2017M1028914

PATIENT
  Age: 52 Year
  Sex: Male
  Weight: 69 kg

DRUGS (14)
  1. CLOZAPINE. [Suspect]
     Active Substance: CLOZAPINE
     Indication: SCHIZOPHRENIA
     Dosage: 50 MG, QD
     Dates: start: 20170422
  2. CLOZAPINE. [Suspect]
     Active Substance: CLOZAPINE
     Dosage: 75 MG, UNK
     Dates: start: 20170423
  3. CLOZAPINE. [Suspect]
     Active Substance: CLOZAPINE
     Dosage: 100 MG, UNK
     Dates: start: 20170424
  4. ABILIFY [Suspect]
     Active Substance: ARIPIPRAZOLE
     Indication: PRODUCT USED FOR UNKNOWN INDICATION
     Dosage: UNK
     Dates: start: 2017
  5. QUETIAPINE. [Concomitant]
     Active Substance: QUETIAPINE
     Indication: PRODUCT USED FOR UNKNOWN INDICATION
     Dosage: 200 MG, HS
  6. CITALOPRAM [Concomitant]
     Active Substance: CITALOPRAM HYDROBROMIDE
     Indication: PRODUCT USED FOR UNKNOWN INDICATION
     Dosage: 40 MG, QD
  7. CLOZAPINE. [Suspect]
     Active Substance: CLOZAPINE
     Dosage: 75 MG, HS
     Dates: start: 20170426
  8. CLOZAPINE. [Suspect]
     Active Substance: CLOZAPINE
     Indication: PSYCHOTIC DISORDER
     Dosage: 25 MG, QD
     Dates: start: 20170421
  9. LOXAPINE. [Concomitant]
     Active Substance: LOXAPINE
     Indication: PRODUCT USED FOR UNKNOWN INDICATION
     Dosage: 5 MG, AM
  10. LOXAPINE. [Concomitant]
     Active Substance: LOXAPINE
     Dosage: 2.5 MG, HS
  11. RISPERIDONE MYLAN [Suspect]
     Active Substance: RISPERIDONE
     Indication: PRODUCT USED FOR UNKNOWN INDICATION
     Dosage: 3 MG, AM
  12. CLOZAPINE. [Suspect]
     Active Substance: CLOZAPINE
     Dosage: 125 MG, UNK
     Dates: start: 20170425
  13. RISPERIDONE MYLAN [Suspect]
     Active Substance: RISPERIDONE
     Dosage: 4 MG, HS
     Dates: start: 20170529
  14. CLOZAPINE. [Suspect]
     Active Substance: CLOZAPINE
     Dosage: UNK
     Dates: start: 20170427, end: 20170427

REACTIONS (13)
  - Neuroleptic malignant syndrome [Unknown]
  - Adjusted calcium increased [Not Recovered/Not Resolved]
  - Blood phosphorus increased [Unknown]
  - Troponin I increased [Not Recovered/Not Resolved]
  - Bilirubin urine present [Unknown]
  - Blood bilirubin increased [Unknown]
  - Protein total increased [Unknown]
  - Blood calcium decreased [Not Recovered/Not Resolved]
  - Chronic kidney disease [Recovering/Resolving]
  - Blood glucose increased [Unknown]
  - Blood sodium increased [Unknown]
  - Haemoglobin increased [Unknown]
  - Alanine aminotransferase increased [Not Recovered/Not Resolved]

NARRATIVE: CASE EVENT DATE: 20170427
